FAERS Safety Report 9737484 (Version 1)
Quarter: 2013Q4

REPORT INFORMATION
  Report Type: Spontaneous
  Country: BR (occurrence: BR)
  Receive Date: 20131206
  Receipt Date: 20131206
  Transmission Date: 20140711
  Serious: Yes (Hospitalization)
  Sender: FDA-Public Use
  Company Number: BR-ASTRAZENECA-2013SE88441

PATIENT
  Age: 65 Year
  Sex: Female
  Weight: 93 kg

DRUGS (4)
  1. ATACAND HCT [Suspect]
     Indication: BLOOD PRESSURE FLUCTUATION
     Dosage: 16/12.5 MG DAILY
     Route: 048
     Dates: start: 2005
  2. CRESTOR [Suspect]
     Indication: BLOOD CHOLESTEROL INCREASED
     Route: 048
  3. CRESTOR [Suspect]
     Indication: BLOOD CHOLESTEROL INCREASED
     Route: 048
  4. ZETIA [Concomitant]
     Indication: BLOOD CHOLESTEROL INCREASED
     Route: 048

REACTIONS (4)
  - Coronary artery occlusion [Recovered/Resolved]
  - Dyspnoea [Recovered/Resolved]
  - Blood pressure fluctuation [Recovered/Resolved]
  - Arthralgia [Recovered/Resolved]
